FAERS Safety Report 19918479 (Version 2)
Quarter: 2021Q4

REPORT INFORMATION
  Report Type: Spontaneous
  Country: DE (occurrence: DE)
  Receive Date: 20211005
  Receipt Date: 20211209
  Transmission Date: 20220303
  Serious: Yes (Other)
  Sender: FDA-Public Use
  Company Number: None

PATIENT
  Age: 31 Year
  Sex: Female

DRUGS (9)
  1. ACETAMINOPHEN [Suspect]
     Active Substance: ACETAMINOPHEN
     Indication: Product used for unknown indication
     Dosage: UNK, PARACETAMOL 500
     Route: 065
     Dates: start: 202106
  2. PANTOPRAZOLE [Suspect]
     Active Substance: PANTOPRAZOLE
     Indication: Product used for unknown indication
     Dosage: UNK (PANTOPRAZOL 40 ) (TABLET)
     Route: 065
     Dates: start: 202106, end: 202107
  3. DICLOFENAC [Suspect]
     Active Substance: DICLOFENAC
     Indication: Product used for unknown indication
     Dosage: UNK, DICLOFENAX 75
     Route: 065
     Dates: start: 202106, end: 202107
  4. OXYCODONE [Suspect]
     Active Substance: OXYCODONE
     Indication: Product used for unknown indication
     Dosage: UNK (OXYCODON 5)
     Route: 065
     Dates: start: 202106
  5. PREGABALIN [Suspect]
     Active Substance: PREGABALIN
     Indication: Product used for unknown indication
     Dosage: UNK (PREGABALIN 75)
     Route: 065
     Dates: start: 202106
  6. DIENOGEST\ETHINYL ESTRADIOL [Suspect]
     Active Substance: DIENOGEST\ETHINYL ESTRADIOL
     Indication: Product used for unknown indication
     Dosage: UNK (PAUSED FROM 2009-2012)
     Route: 065
     Dates: start: 20030607, end: 20210708
  7. AMOXICILLIN CLAVULANIC ACID 875/125 MYLAN [Concomitant]
     Indication: Product used for unknown indication
     Dosage: UNK (UNK)
     Route: 065
  8. AMOXICILLIN CLAVULANIC ACID 875/125 MYLAN [Concomitant]
     Dosage: UNK
     Route: 065
  9. APIXABAN [Concomitant]
     Active Substance: APIXABAN
     Indication: Anticoagulant therapy
     Dosage: UNK (UNK)
     Route: 065

REACTIONS (2)
  - Pulmonary embolism [Unknown]
  - Pneumonia [Unknown]

NARRATIVE: CASE EVENT DATE: 20210623
